FAERS Safety Report 9398686 (Version 1)
Quarter: 2013Q3

REPORT INFORMATION
  Report Type: Spontaneous
  Country: CN (occurrence: CN)
  Receive Date: 20130712
  Receipt Date: 20130712
  Transmission Date: 20140515
  Serious: Yes (Other)
  Sender: FDA-Public Use
  Company Number: CN-BAXTER-2013BAX026618

PATIENT
  Age: 5 Year
  Sex: Male
  Weight: 19.5 kg

DRUGS (2)
  1. 20% MANNITOL INJECTION [Suspect]
     Indication: ENCEPHALITIS VIRAL
     Route: 042
     Dates: start: 20120627, end: 20120702
  2. 20% MANNITOL INJECTION [Suspect]
     Dosage: ADMINISTERED FOR 6 CONTINUOUS DAYS
     Route: 042

REACTIONS (2)
  - Rash maculo-papular [Recovering/Resolving]
  - Pruritus [Recovering/Resolving]
